FAERS Safety Report 14755305 (Version 1)
Quarter: 2018Q2

REPORT INFORMATION
  Report Type: Spontaneous
  Country: ES (occurrence: ES)
  Receive Date: 20180413
  Receipt Date: 20180413
  Transmission Date: 20180711
  Serious: Yes (Hospitalization)
  Sender: FDA-Public Use
  Company Number: ES-CONCORDIA PHARMACEUTICALS INC.-E2B_00011058

PATIENT
  Age: 85 Year
  Sex: Male

DRUGS (11)
  1. ELIQUIS 2,5 MG COMPRIMIDOS RECUBIERTOS CON PELICULA, 100 COMPRIMIDOS [Concomitant]
     Route: 048
     Dates: start: 20150527
  2. OMEPRAZOL (2141A) [Concomitant]
     Active Substance: OMEPRAZOLE
     Route: 048
     Dates: start: 20150715
  3. PALEXIA RETARD 25 MG COMPRIMIDOS DE LIBERACION PROLONGADA , 60 COMPRIM [Concomitant]
     Route: 048
     Dates: start: 20180116
  4. HIDROFEROL 0,266 MG SOLUCION ORAL , 10 AMPOLLAS BEBIBLES DE 1,5 ML [Concomitant]
     Route: 048
     Dates: start: 20161220
  5. FUROSEMIDA CINFA 40 MG COMPRIMIDOS EFG, 30 COMPRIMIDOS [Concomitant]
     Route: 048
     Dates: start: 20150925
  6. PREDNISONA CINFA 5 MG COMPRIMIDOS EFG, 60 COMPRIMIDOS [Concomitant]
     Route: 048
     Dates: start: 20160531
  7. DIGOXIN. [Suspect]
     Active Substance: DIGOXIN
     Route: 048
     Dates: start: 20170116, end: 20180321
  8. METAMIZOL CINFA 575 MG CAPSULAS DURAS EFG, 20 C?PSULAS [Concomitant]
     Route: 048
     Dates: start: 20161220
  9. VERSATIS 5% APOSITO ADHESIVO MEDICAMENTOSO 30 AP?SITOS [Concomitant]
     Route: 062
     Dates: start: 20170531
  10. PREVENCOR 40 MG COMPRIMIDOS RECUBIERTOS CON PELICULA, 28 COMPRIMIDOS [Concomitant]
     Route: 048
     Dates: start: 20150527
  11. BISOPROLOL NORMON 2,5 MG COMPRIMIDOS RECUBIERTOS CON PELICULA EFG , 28 [Suspect]
     Active Substance: BISOPROLOL
     Route: 048
     Dates: start: 20150310, end: 20180321

REACTIONS (1)
  - Atrioventricular block complete [Recovered/Resolved]

NARRATIVE: CASE EVENT DATE: 20180320
